FAERS Safety Report 5441469-3 (Version None)
Quarter: 2007Q3

REPORT INFORMATION
  Report Type: 
  Country: None (occurrence: None)
  Receive Date: 20070904
  Receipt Date: 20070821
  Transmission Date: 20080115
  Serious: No
  Sender: FDA-Public Use
  Company Number: GB-ELI_LILLY_AND_COMPANY-GB200708005471

PATIENT
  Age: 22 Year
  Sex: Female

DRUGS (2)
  1. OLANZAPINE [Suspect]
     Dates: start: 20070601, end: 20070701
  2. SIMVASTATIN [Concomitant]
     Dates: end: 20070701

REACTIONS (1)
  - NEUTROPENIA [None]
